FAERS Safety Report 6039712-5 (Version None)
Quarter: 2009Q1

REPORT INFORMATION
  Report Type: 
  Country: None (occurrence: None)
  Receive Date: 20090116
  Receipt Date: 20090113
  Transmission Date: 20090719
  Serious: Yes (Death)
  Sender: FDA-Public Use
  Company Number: PHHY2008MX30307

PATIENT
  Age: 57 Year
  Sex: Female

DRUGS (2)
  1. EXFORGE [Suspect]
     Indication: HYPERTENSION
     Dosage: 1 DF, QD
     Route: 048
     Dates: start: 20080801
  2. DIAMICRON [Concomitant]
     Indication: DIABETES MELLITUS
     Dosage: 30 MG PER DAY

REACTIONS (4)
  - AZOTAEMIA [None]
  - CARDIAC FAILURE [None]
  - DIABETES MELLITUS [None]
  - HYPERTENSION [None]
